FAERS Safety Report 7156705-5 (Version None)
Quarter: 2010Q4

REPORT INFORMATION
  Report Type: 
  Country: None (occurrence: None)
  Receive Date: 20101214
  Receipt Date: 20091201
  Transmission Date: 20110411
  Serious: No
  Sender: FDA-Public Use
  Company Number: US-ASTRAZENECA-2009SE29732

PATIENT
  Age: 72 Year
  Sex: Male
  Weight: 79.4 kg

DRUGS (3)
  1. CRESTOR [Suspect]
     Indication: BLOOD CHOLESTEROL ABNORMAL
     Route: 048
     Dates: start: 20080401, end: 20091001
  2. BENICAR HCT [Concomitant]
  3. LODIPINE [Concomitant]

REACTIONS (1)
  - ARRHYTHMIA [None]
